FAERS Safety Report 12282555 (Version 1)
Quarter: 2016Q2

REPORT INFORMATION
  Report Type: Spontaneous
  Country: US (occurrence: US)
  Receive Date: 20160419
  Receipt Date: 20160419
  Transmission Date: 20160815
  Serious: No
  Sender: FDA-Public Use
  Company Number: ADR-2015-01616

PATIENT
  Age: 52 Year
  Sex: Male

DRUGS (5)
  1. BACLOFEN. [Suspect]
     Active Substance: BACLOFEN
     Dosage: 83.91 MCG/DAY
     Route: 037
  2. CLONIDINE. [Suspect]
     Active Substance: CLONIDINE
     Dosage: 83.91 MCG/DAY
     Route: 037
  3. PERCOCET [Suspect]
     Active Substance: ACETAMINOPHEN\OXYCODONE HYDROCHLORIDE
     Route: 048
  4. FENTANYL. [Suspect]
     Active Substance: FENTANYL
     Dosage: 83.91 MCG/DAY
     Route: 037
  5. MORPHINE [Suspect]
     Active Substance: MORPHINE
     Dosage: 30 ML
     Route: 048

REACTIONS (11)
  - Fatigue [Unknown]
  - Pain [Unknown]
  - Hyperaesthesia [Unknown]
  - Nausea [Unknown]
  - Medical device site swelling [Unknown]
  - Medical device site discomfort [Unknown]
  - Fall [Unknown]
  - Burning sensation [Unknown]
  - Performance status decreased [Unknown]
  - Hypoaesthesia [Unknown]
  - Dyspepsia [Unknown]
